FAERS Safety Report 17113080 (Version 1)
Quarter: 2019Q4

REPORT INFORMATION
  Report Type: Spontaneous
  Country: US (occurrence: US)
  Receive Date: 20191204
  Receipt Date: 20191204
  Transmission Date: 20200122
  Serious: No
  Sender: FDA-Public Use
  Company Number: US-GILEAD-2019-0441095

PATIENT
  Sex: Female

DRUGS (11)
  1. VOSEVI [Suspect]
     Active Substance: SOFOSBUVIR\VELPATASVIR\VOXILAPREVIR
     Indication: CHRONIC HEPATITIS C
     Dosage: 1 DOSAGE FORM, QD
     Route: 048
     Dates: start: 201909, end: 20191130
  2. FOLIC ACID. [Concomitant]
     Active Substance: FOLIC ACID
  3. CARAFATE [Concomitant]
     Active Substance: SUCRALFATE
  4. LACTULOSE. [Concomitant]
     Active Substance: LACTULOSE
  5. METHYLPREDNISOLONE. [Concomitant]
     Active Substance: METHYLPREDNISOLONE
  6. VITAMIN B1 [Concomitant]
     Active Substance: THIAMINE HYDROCHLORIDE
  7. ZINC. [Concomitant]
     Active Substance: ZINC
  8. ALBUTEROL SULFATE. [Concomitant]
     Active Substance: ALBUTEROL SULFATE
  9. CLOTRIMAZOLE AND BETAMETHASONE DIPROPIONATE [Concomitant]
     Active Substance: BETAMETHASONE\BETAMETHASONE DIPROPIONATE\CLOTRIMAZOLE
  10. COLACE [Concomitant]
     Active Substance: DOCUSATE SODIUM
  11. THERAPEUTIC M [Concomitant]

REACTIONS (2)
  - Eating disorder [Unknown]
  - Fatigue [Unknown]
